FAERS Safety Report 14071908 (Version 1)
Quarter: 2017Q4

REPORT INFORMATION
  Report Type: Spontaneous
  Country: US (occurrence: None)
  Receive Date: 20171010
  Receipt Date: 20171010
  Transmission Date: 20180321
  Serious: Yes (Hospitalization)
  Sender: FDA-Public Use
  Company Number: None

PATIENT
  Age: 46 Year
  Sex: Female

DRUGS (4)
  1. SERTRALINE [Concomitant]
     Active Substance: SERTRALINE HYDROCHLORIDE
  2. GILENYA [Suspect]
     Active Substance: FINGOLIMOD HYDROCHLORIDE
     Indication: MULTIPLE SCLEROSIS
     Route: 048
     Dates: start: 20120321
  3. METHYLPHENID [Concomitant]
     Active Substance: METHYLPHENIDATE
  4. LEVETIRACETA [Concomitant]

REACTIONS (3)
  - Drug dose omission [None]
  - Cystitis [None]
  - Nephrolithiasis [None]

NARRATIVE: CASE EVENT DATE: 20170914
